FAERS Safety Report 15349931 (Version 5)
Quarter: 2019Q2

REPORT INFORMATION
  Report Type: Report from Study
  Country: KR (occurrence: KR)
  Receive Date: 20180904
  Receipt Date: 20190605
  Transmission Date: 20190711
  Serious: Yes (Hospitalization)
  Sender: FDA-Public Use
  Company Number: PHHY2018KR088054

PATIENT
  Age: 45 Year
  Sex: Female
  Weight: 56 kg

DRUGS (4)
  1. ALITOC [Concomitant]
     Indication: PUSTULAR PSORIASIS
     Dosage: 10 MG, UNK
     Route: 065
     Dates: start: 20180628
  2. XAMIOL [Concomitant]
     Active Substance: BETAMETHASONE DIPROPIONATE\CALCIPOTRIENE HYDRATE
     Indication: PUSTULAR PSORIASIS
     Dosage: UNK UNK, PRN
     Route: 065
     Dates: start: 20180629, end: 20180726
  3. NADIXA [Concomitant]
     Indication: PUSTULAR PSORIASIS
     Dosage: UNK UNK, PRN
     Route: 065
     Dates: start: 20180727
  4. COSENTYX [Suspect]
     Active Substance: SECUKINUMAB
     Indication: ANKYLOSING SPONDYLITIS
     Dosage: 150 MG, UNK
     Route: 058
     Dates: start: 20180703, end: 20180828

REACTIONS (1)
  - Nephritis [Recovered/Resolved]

NARRATIVE: CASE EVENT DATE: 20180731
